FAERS Safety Report 9275876 (Version 1)
Quarter: 2013Q2

REPORT INFORMATION
  Report Type: Spontaneous
  Country: KR (occurrence: KR)
  Receive Date: 20130507
  Receipt Date: 20130507
  Transmission Date: 20140414
  Serious: Yes (Other)
  Sender: FDA-Public Use
  Company Number: KR-JNJFOC-20130416230

PATIENT
  Age: 7 Month
  Sex: Male

DRUGS (1)
  1. CHILDREN^S TYLENOL [Suspect]
     Indication: PRODUCT USED FOR UNKNOWN INDICATION
     Route: 048

REACTIONS (2)
  - Liver injury [Recovered/Resolved]
  - Pyrexia [Recovered/Resolved]
